FAERS Safety Report 6984480-3 (Version None)
Quarter: 2010Q3

REPORT INFORMATION
  Report Type: 
  Country: None (occurrence: None)
  Receive Date: 20100913
  Receipt Date: 20100902
  Transmission Date: 20110219
  Serious: Yes (Other)
  Sender: FDA-Public Use
  Company Number: 017606

PATIENT
  Sex: Female
  Weight: 87.5 kg

DRUGS (2)
  1. KEPPRA [Suspect]
     Indication: CONVULSION
     Dates: start: 20100720
  2. THYROID [Concomitant]

REACTIONS (1)
  - SELECTIVE IGA IMMUNODEFICIENCY [None]
